FAERS Safety Report 24237133 (Version 1)
Quarter: 2024Q3

REPORT INFORMATION
  Report Type: Spontaneous
  Country: US (occurrence: US)
  Receive Date: 20240822
  Receipt Date: 20240822
  Transmission Date: 20241017
  Serious: Yes (Other)
  Sender: MYLAN
  Company Number: US-MYLANLABS-2024M1075913

PATIENT
  Age: 43 Year
  Sex: Female

DRUGS (5)
  1. PREDNISONE [Suspect]
     Active Substance: PREDNISONE
     Indication: Hypereosinophilic syndrome
     Dosage: 20 MILLIGRAM, QD
     Route: 065
  2. IMATINIB [Suspect]
     Active Substance: IMATINIB
     Indication: Hypereosinophilic syndrome
     Dosage: 400 MILLIGRAM, QD, FOR 6-WEEKS
     Route: 048
  3. INTERFERON ALFA NOS [Suspect]
     Active Substance: INTERFERON ALFA-2A OR INTERFERON ALFA-2B
     Indication: Hypereosinophilic syndrome
     Dosage: UNK, QD, UP TO 3 MILLION UNITS
     Route: 058
  4. MEPOLIZUMAB [Concomitant]
     Active Substance: MEPOLIZUMAB
     Indication: Hypereosinophilic syndrome
     Dosage: 750 MILLIGRAM, MONTHLY
     Route: 065
  5. HYDROXYUREA [Concomitant]
     Active Substance: HYDROXYUREA
     Indication: Hypereosinophilic syndrome
     Dosage: UNK
     Route: 065

REACTIONS (1)
  - Drug ineffective [Unknown]
